FAERS Safety Report 4579081-0 (Version None)
Quarter: 2005Q1

REPORT INFORMATION
  Report Type: 
  Country: None (occurrence: None)
  Receive Date: 20050127
  Receipt Date: 20040903
  Transmission Date: 20050727
  Serious: No
  Sender: FDA-Public Use
  Company Number: USA040977436

PATIENT
  Age: 13 Year
  Sex: Male
  Weight: 43 kg

DRUGS (1)
  1. STRATTERA [Suspect]
     Dosage: 60 MG

REACTIONS (4)
  - HEADACHE [None]
  - PALLOR [None]
  - SOMNOLENCE [None]
  - WEIGHT DECREASED [None]
